FAERS Safety Report 4374545-7 (Version None)
Quarter: 2004Q2

REPORT INFORMATION
  Report Type: 
  Country: None (occurrence: None)
  Receive Date: 20040609
  Receipt Date: 20040602
  Transmission Date: 20050107
  Serious: Yes (Hospitalization)
  Sender: FDA-Public Use
  Company Number: GB-MERCK-0406GBR00036

PATIENT
  Sex: Female

DRUGS (1)
  1. ZETIA [Suspect]
     Route: 048
     Dates: start: 20040501

REACTIONS (5)
  - ASTHMA [None]
  - FEELING ABNORMAL [None]
  - SWELLING FACE [None]
  - SWOLLEN TONGUE [None]
  - TREMOR [None]
